FAERS Safety Report 9437675 (Version 1)
Quarter: 2013Q3

REPORT INFORMATION
  Report Type: Spontaneous
  Country: FR (occurrence: None)
  Receive Date: 20130731
  Receipt Date: 20130731
  Transmission Date: 20140515
  Serious: Yes (Hospitalization)
  Sender: FDA-Public Use
  Company Number: 2013-002354

PATIENT
  Age: 61 Year
  Sex: Male

DRUGS (2)
  1. ACTONEL [Suspect]
     Route: 048
  2. CORTANCYL [Suspect]
     Indication: POLYMYALGIA RHEUMATICA
     Route: 048
     Dates: start: 20130530, end: 20130710

REACTIONS (2)
  - Thrombocytopenia [None]
  - Immune thrombocytopenic purpura [None]
